FAERS Safety Report 5066398-9 (Version None)
Quarter: 2006Q3

REPORT INFORMATION
  Report Type: 
  Country: None (occurrence: None)
  Receive Date: 20060714
  Receipt Date: 20060518
  Transmission Date: 20061208
  Serious: No
  Sender: FDA-Public Use
  Company Number: 2006SP002113

PATIENT
  Age: 70 Year
  Sex: Female
  Weight: 63.5036 kg

DRUGS (4)
  1. LUNESTA [Suspect]
     Indication: ANXIETY
     Dosage: 2 MG PRN ORAL ; 2 MG HS ORAL ; 2 MG HS ORAL
     Route: 048
     Dates: start: 20060301, end: 20060401
  2. LUNESTA [Suspect]
     Indication: ANXIETY
     Dosage: 2 MG PRN ORAL ; 2 MG HS ORAL ; 2 MG HS ORAL
     Route: 048
     Dates: start: 20060401, end: 20060401
  3. LUNESTA [Suspect]
     Indication: ANXIETY
     Dosage: 2 MG PRN ORAL ; 2 MG HS ORAL ; 2 MG HS ORAL
     Route: 048
     Dates: start: 20060401
  4. HYDROCHLOROTHIAZIDE [Concomitant]

REACTIONS (2)
  - FATIGUE [None]
  - HANGOVER [None]
